FAERS Safety Report 8934139 (Version 1)
Quarter: 2012Q4

REPORT INFORMATION
  Report Type: 
  Country: US (occurrence: US)
  Receive Date: 20121129
  Receipt Date: 20121129
  Transmission Date: 20130627
  Serious: No
  Sender: FDA-Public Use
  Company Number: US-GLAXOSMITHKLINE-A0974981A

PATIENT
  Age: 40 Year
  Sex: Female

DRUGS (4)
  1. WELLBUTRIN SR [Suspect]
     Indication: MAJOR DEPRESSION
     Dosage: 200MG Twice per day
     Route: 048
     Dates: start: 201009
  2. KELNOR [Concomitant]
  3. ELMIRON [Concomitant]
  4. ZONISAMIDE [Concomitant]

REACTIONS (5)
  - Migraine [Unknown]
  - Polymenorrhoea [Unknown]
  - Menorrhagia [Unknown]
  - Menstrual disorder [Unknown]
  - Metrorrhagia [Unknown]
